FAERS Safety Report 6126106-7 (Version None)
Quarter: 2009Q1

REPORT INFORMATION
  Report Type: 
  Country: None (occurrence: None)
  Receive Date: 20090320
  Receipt Date: 20090313
  Transmission Date: 20090719
  Serious: Yes (Hospitalization, Other)
  Sender: FDA-Public Use
  Company Number: A0695894A

PATIENT
  Age: 63 Year
  Sex: Male
  Weight: 108.2 kg

DRUGS (17)
  1. AVANDIA [Suspect]
     Route: 048
     Dates: start: 20001201, end: 20070601
  2. GLUCOPHAGE [Concomitant]
     Dates: start: 20000101
  3. METFORMIN HCL [Concomitant]
     Dates: start: 20030101, end: 20040101
  4. LANTUS [Concomitant]
     Dates: start: 20050101, end: 20050101
  5. GLUCOTROL [Concomitant]
     Dates: start: 20000101
  6. ZOCOR [Concomitant]
  7. MULTI-VITAMIN [Concomitant]
  8. ASPIRIN [Concomitant]
  9. METOCLOPRAMIDE [Concomitant]
  10. AMIODARONE HCL [Concomitant]
  11. FUROSEMIDE [Concomitant]
  12. FLOMAX [Concomitant]
  13. LASIX [Concomitant]
  14. LEXAPRO [Concomitant]
  15. MIRALAX [Concomitant]
  16. CORDARONE [Concomitant]
  17. COLACE [Concomitant]

REACTIONS (8)
  - ACTIVITIES OF DAILY LIVING IMPAIRED [None]
  - CARDIAC FAILURE CONGESTIVE [None]
  - CARDIO-RESPIRATORY ARREST [None]
  - FATIGUE [None]
  - FEAR OF DEATH [None]
  - HEART INJURY [None]
  - MYOCARDIAL INFARCTION [None]
  - PAIN [None]
